FAERS Safety Report 23539109 (Version 1)
Quarter: 2024Q1

REPORT INFORMATION
  Report Type: Report from Study
  Country: US (occurrence: US)
  Receive Date: 20240219
  Receipt Date: 20240219
  Transmission Date: 20240410
  Serious: Yes (Other)
  Sender: FDA-Public Use
  Company Number: US-BAYER-2024A024293

PATIENT

DRUGS (2)
  1. BAYER RAPID RELIEF [Suspect]
     Active Substance: ASPIRIN\CAFFEINE
     Indication: Pain
     Dosage: 650 MG
     Route: 048
  2. BAYER RAPID RELIEF [Suspect]
     Active Substance: ASPIRIN\CAFFEINE
     Indication: Headache

REACTIONS (3)
  - Burn oral cavity [Unknown]
  - Drug ineffective [Unknown]
  - Product use complaint [Unknown]
